FAERS Safety Report 5874505-0 (Version None)
Quarter: 2008Q3

REPORT INFORMATION
  Report Type: 
  Country: None (occurrence: None)
  Receive Date: 20080909
  Receipt Date: 20080828
  Transmission Date: 20090109
  Serious: Yes (Other)
  Sender: FDA-Public Use
  Company Number: PHHY2008FR19561

PATIENT
  Age: 80 Year
  Sex: Male

DRUGS (8)
  1. LAMISIL [Suspect]
     Dosage: 250 MG PER DAY
     Route: 048
  2. AMLOR [Concomitant]
     Dosage: UNK
  3. PLAVIX [Concomitant]
     Dosage: UNK
  4. OMACOR [Concomitant]
     Dosage: UNK
  5. SELOKEN [Concomitant]
     Dosage: UNK
  6. NOVONORM [Concomitant]
     Dosage: UNK
  7. ISOCARD [Concomitant]
     Dosage: UNK
  8. BROMAZEPAM [Concomitant]
     Dosage: UNK

REACTIONS (3)
  - BLOOD ALKALINE PHOSPHATASE INCREASED [None]
  - CHOLESTASIS [None]
  - GAMMA-GLUTAMYLTRANSFERASE INCREASED [None]
